FAERS Safety Report 5719513-5 (Version None)
Quarter: 2008Q2

REPORT INFORMATION
  Report Type: 
  Country: None (occurrence: None)
  Receive Date: 20080428
  Receipt Date: 20071126
  Transmission Date: 20081010
  Serious: No
  Sender: FDA-Public Use
  Company Number: A0695701A

PATIENT
  Age: 38 Year
  Sex: Female

DRUGS (2)
  1. AMERGE [Suspect]
     Indication: MIGRAINE
     Dosage: 1.25MG THREE TIMES PER DAY
     Route: 048
     Dates: start: 20050101
  2. IMITREX [Concomitant]
     Route: 065

REACTIONS (2)
  - LACTOSE INTOLERANCE [None]
  - MIGRAINE [None]
